FAERS Safety Report 7782178-5 (Version None)
Quarter: 2011Q3

REPORT INFORMATION
  Report Type: 
  Country: None (occurrence: None)
  Receive Date: 20110927
  Receipt Date: 20110920
  Transmission Date: 20111222
  Serious: Yes (Other)
  Sender: FDA-Public Use
  Company Number: US-AMGEN-USASP2011048463

PATIENT
  Sex: Male

DRUGS (2)
  1. ENBREL [Suspect]
     Indication: PSORIATIC ARTHROPATHY
     Dosage: 50 MG, QWK
     Dates: start: 20060101
  2. ANTIHYPERTENSIVES [Concomitant]

REACTIONS (9)
  - HYPERTENSION [None]
  - ANKLE FRACTURE [None]
  - RASH MACULAR [None]
  - PRURITUS [None]
  - FALL [None]
  - DIZZINESS [None]
  - ARTHRALGIA [None]
  - RASH PRURITIC [None]
  - RASH [None]
